FAERS Safety Report 8553181-2 (Version None)
Quarter: 2012Q3

REPORT INFORMATION
  Report Type: 
  Country: None (occurrence: None)
  Receive Date: 20120725
  Receipt Date: 20120725
  Transmission Date: 20120928
  Serious: Yes (Disabling)
  Sender: FDA-Public Use
  Company Number: None

PATIENT
  Age: 1 Year
  Sex: Male

DRUGS (2)
  1. RHOGAM ULTRA-FILTERED [Suspect]
     Indication: HAEMORRHAGE IN PREGNANCY
     Dosage: 300 UG
     Dates: start: 20070722
  2. RHOGAM ULTRA-FILTERED [Suspect]
     Indication: HAEMORRHAGE IN PREGNANCY
     Dosage: 300 UG
     Dates: start: 20070722

REACTIONS (5)
  - NERVOUS SYSTEM DISORDER [None]
  - GASTROOESOPHAGEAL REFLUX DISEASE [None]
  - BLOOD BILIRUBIN INCREASED [None]
  - MATERNAL DRUGS AFFECTING FOETUS [None]
  - DEVELOPMENTAL DELAY [None]
